FAERS Safety Report 4413185-8 (Version None)
Quarter: 2004Q3

REPORT INFORMATION
  Report Type: 
  Country: None (occurrence: None)
  Receive Date: 20040802
  Receipt Date: 20040721
  Transmission Date: 20050211
  Serious: Yes (Hospitalization)
  Sender: FDA-Public Use
  Company Number: JP-GLAXOSMITHKLINE-B0340455A

PATIENT
  Age: 81 Year
  Sex: Female
  Weight: 48 kg

DRUGS (7)
  1. VALTREX [Suspect]
     Indication: HERPES ZOSTER
     Dosage: 1000MG THREE TIMES PER DAY
     Route: 048
     Dates: start: 20030419, end: 20030420
  2. ZOVIRAX [Concomitant]
     Indication: HERPES ZOSTER
     Route: 042
     Dates: start: 20030418, end: 20030418
  3. VOLTAREN [Concomitant]
     Route: 054
  4. VOLTAREN [Concomitant]
     Route: 048
  5. CYANOCOBALAMIN [Concomitant]
     Route: 065
  6. GLYCLAMIN [Concomitant]
     Route: 048
  7. ANDERM [Concomitant]
     Route: 061

REACTIONS (2)
  - MUSCULAR WEAKNESS [None]
  - RENAL IMPAIRMENT [None]
